FAERS Safety Report 4501546-8 (Version None)
Quarter: 2004Q3

REPORT INFORMATION
  Report Type: 
  Country: None (occurrence: None)
  Receive Date: 20040928
  Receipt Date: 20040826
  Transmission Date: 20050211
  Serious: No
  Sender: FDA-Public Use
  Company Number: 04P-163-0271636-00

PATIENT
  Age: 52 Year
  Sex: Female
  Weight: 83.9154 kg

DRUGS (8)
  1. HUMIRA [Suspect]
     Indication: RHEUMATOID ARTHRITIS
     Dosage: 40 MG, 1 IN 2 WK, SUBCUTANEOUS
     Route: 058
     Dates: start: 20040601
  2. PREDNISONE [Concomitant]
  3. HYDROCODONE [Concomitant]
  4. METOPROLOL SUCCINATE [Concomitant]
  5. PANTOPRAZOLE [Concomitant]
  6. ALENDRONATE SODIUM [Concomitant]
  7. VENLAFAXINE HYDROCHLORIDE [Concomitant]
  8. CYCLOBENZAPRINE HYDROCHLORIDE [Concomitant]

REACTIONS (1)
  - ABDOMINAL PAIN UPPER [None]
